FAERS Safety Report 17924039 (Version 2)
Quarter: 2020Q2

REPORT INFORMATION
  Report Type: Spontaneous
  Country: BR (occurrence: BR)
  Receive Date: 20200622
  Receipt Date: 20200623
  Transmission Date: 20200714
  Serious: Yes (Hospitalization, Other)
  Sender: FDA-Public Use
  Company Number: BR-PFIZER INC-2017423399

PATIENT
  Age: 73 Year
  Sex: Male

DRUGS (12)
  1. SELOZOK [Concomitant]
     Active Substance: METOPROLOL SUCCINATE
     Dosage: UNK
     Dates: start: 2003
  2. SUTENT [Suspect]
     Active Substance: SUNITINIB MALATE
     Dosage: 7-DAYS CYCLE
     Dates: start: 202006, end: 202006
  3. CRESTOR [Concomitant]
     Active Substance: ROSUVASTATIN CALCIUM
     Dosage: UNK
     Dates: start: 2003
  4. SUTENT [Suspect]
     Active Substance: SUNITINIB MALATE
     Dosage: UNK
     Route: 048
     Dates: start: 20170925, end: 2017
  5. OMEGA 3 [FISH OIL] [Concomitant]
     Active Substance: FISH OIL
     Dosage: UNK
     Dates: start: 2003
  6. SUTENT [Suspect]
     Active Substance: SUNITINIB MALATE
     Dosage: 8-DAYS CYCLE
     Dates: start: 202005
  7. VENZER HCT [Concomitant]
     Active Substance: CANDESARTAN CILEXETIL\HYDROCHLOROTHIAZIDE
     Dosage: UNK
     Dates: start: 2003
  8. SUTENT [Suspect]
     Active Substance: SUNITINIB MALATE
     Indication: METASTASES TO LUNG
     Dosage: 50 MG, 1X/DAY (ONCE DAILY)
     Route: 048
     Dates: start: 201708
  9. SUTENT [Suspect]
     Active Substance: SUNITINIB MALATE
     Dosage: 15-DAYS CYCLIC
  10. PURAN [Concomitant]
     Active Substance: LEVOTHYROXINE SODIUM
     Dosage: UNK
     Dates: start: 2003
  11. SUTENT [Suspect]
     Active Substance: SUNITINIB MALATE
     Dosage: 10-DAYS CYCLE
     Dates: start: 202004
  12. SOMALGIN CARDIO [Concomitant]
     Active Substance: ASPIRIN\DIHYDROXYALUMINUM AMINOACETATE ANHYDROUS\MAGNESIUM CARBONATE
     Dosage: UNK
     Dates: start: 2003

REACTIONS (34)
  - Condition aggravated [Not Recovered/Not Resolved]
  - Eating disorder [Recovering/Resolving]
  - Swelling face [Not Recovered/Not Resolved]
  - Product use in unapproved indication [Unknown]
  - Yellow skin [Recovering/Resolving]
  - Throat tightness [Not Recovered/Not Resolved]
  - Malaise [Not Recovered/Not Resolved]
  - Eye swelling [Not Recovered/Not Resolved]
  - Haematoma [Not Recovered/Not Resolved]
  - Injury [Not Recovered/Not Resolved]
  - Anal injury [Not Recovered/Not Resolved]
  - Skin fissures [Not Recovered/Not Resolved]
  - Mucosal inflammation [Recovering/Resolving]
  - Oral disorder [Not Recovered/Not Resolved]
  - Gastrointestinal injury [Not Recovered/Not Resolved]
  - Dysphagia [Not Recovered/Not Resolved]
  - Penis injury [Not Recovered/Not Resolved]
  - Asthenia [Not Recovered/Not Resolved]
  - Fatigue [Recovering/Resolving]
  - Intentional product misuse [Unknown]
  - Dry mouth [Not Recovered/Not Resolved]
  - Aptyalism [Not Recovered/Not Resolved]
  - Abnormal sensation in eye [Not Recovered/Not Resolved]
  - Blood pressure fluctuation [Not Recovered/Not Resolved]
  - Oral pain [Unknown]
  - Skin abrasion [Not Recovered/Not Resolved]
  - Abdominal pain upper [Not Recovered/Not Resolved]
  - Haematochezia [Not Recovered/Not Resolved]
  - Weight decreased [Not Recovered/Not Resolved]
  - Oropharyngeal pain [Unknown]
  - Off label use [Unknown]
  - Skin discolouration [Recovering/Resolving]
  - Burning sensation [Not Recovered/Not Resolved]
  - Diarrhoea [Not Recovered/Not Resolved]

NARRATIVE: CASE EVENT DATE: 201708
